FAERS Safety Report 22901307 (Version 5)
Quarter: 2025Q1

REPORT INFORMATION
  Report Type: Report from Study
  Country: BR (occurrence: BR)
  Receive Date: 20230904
  Receipt Date: 20250306
  Transmission Date: 20250409
  Serious: Yes (Hospitalization, Other)
  Sender: TAKEDA
  Company Number: BR-TAKEDA-2023TUS085827

PATIENT
  Sex: Female
  Weight: 48 kg

DRUGS (3)
  1. HUMAN IMMUNOGLOBULIN G\HYALURONIDASE RECOMBINANT HUMAN [Suspect]
     Active Substance: HUMAN IMMUNOGLOBULIN G\HYALURONIDASE (HUMAN RECOMBINANT)
     Indication: Immunodeficiency
     Dosage: UNK UNK, Q4WEEKS
     Dates: start: 20081220
  2. HUMAN IMMUNOGLOBULIN G\HYALURONIDASE RECOMBINANT HUMAN [Suspect]
     Active Substance: HUMAN IMMUNOGLOBULIN G\HYALURONIDASE (HUMAN RECOMBINANT)
     Indication: Primary immunodeficiency syndrome
     Dosage: 25 GRAM, Q4WEEKS
  3. HUMAN IMMUNOGLOBULIN G\HYALURONIDASE RECOMBINANT HUMAN [Suspect]
     Active Substance: HUMAN IMMUNOGLOBULIN G\HYALURONIDASE (HUMAN RECOMBINANT)
     Dosage: 25 GRAM, MONTHLY

REACTIONS (10)
  - Pneumonia [Recovered/Resolved]
  - Immunodeficiency common variable [Unknown]
  - Hepatic cirrhosis [Unknown]
  - Protein-losing gastroenteropathy [Unknown]
  - Malnutrition [Unknown]
  - Infection [Not Recovered/Not Resolved]
  - Immunoglobulins decreased [Unknown]
  - Sinusitis [Not Recovered/Not Resolved]
  - Intestinal villi atrophy [Unknown]
  - Chronic sinusitis [Unknown]
